FAERS Safety Report 14696339 (Version 1)
Quarter: 2018Q1

REPORT INFORMATION
  Report Type: Spontaneous
  Country: US (occurrence: US)
  Receive Date: 20180329
  Receipt Date: 20180329
  Transmission Date: 20180509
  Serious: No
  Sender: FDA-Public Use
  Company Number: US-SHIRE-US201811628

PATIENT

DRUGS (1)
  1. CINRYZE [Suspect]
     Active Substance: HUMAN C1-ESTERASE INHIBITOR
     Indication: HEREDITARY ANGIOEDEMA
     Dosage: UNK,4 VIALS OF 2000
     Route: 065
     Dates: start: 2016, end: 20180317

REACTIONS (2)
  - Hereditary angioedema [Recovered/Resolved]
  - Drug ineffective [Unknown]
